FAERS Safety Report 5876981-6 (Version None)
Quarter: 2008Q3

REPORT INFORMATION
  Report Type: 
  Country: None (occurrence: None)
  Receive Date: 20080910
  Receipt Date: 20080829
  Transmission Date: 20090109
  Serious: Yes (Other)
  Sender: FDA-Public Use
  Company Number: PHHY2008GB20036

PATIENT
  Age: 68 Year
  Sex: Male

DRUGS (1)
  1. TERBINAFINE HCL [Suspect]
     Indication: ONYCHOMYCOSIS
     Dosage: 250 MG, QD
     Route: 048
     Dates: start: 20080613, end: 20080811

REACTIONS (2)
  - OROPHARYNGEAL PAIN [None]
  - VASCULITIC RASH [None]
